FAERS Safety Report 19488284 (Version 2)
Quarter: 2021Q3

REPORT INFORMATION
  Report Type: Spontaneous
  Country: US (occurrence: US)
  Receive Date: 20210702
  Receipt Date: 20210806
  Transmission Date: 20211014
  Serious: Yes (Other)
  Sender: FDA-Public Use
  Company Number: US-TEVA-2021-US-1927640

PATIENT
  Age: 43 Year
  Sex: Male

DRUGS (11)
  1. CLONAZEPAM. [Concomitant]
     Active Substance: CLONAZEPAM
     Indication: PRODUCT USED FOR UNKNOWN INDICATION
     Dosage: AS NEEDED
     Route: 065
  2. TRIHEXYPHENIDYL [Suspect]
     Active Substance: TRIHEXYPHENIDYL
     Indication: MOVEMENT DISORDER
     Route: 065
  3. VORTIOXETINE. [Concomitant]
     Active Substance: VORTIOXETINE
     Indication: PRODUCT USED FOR UNKNOWN INDICATION
     Route: 065
  4. QUETIAPINE. [Suspect]
     Active Substance: QUETIAPINE
     Indication: MOVEMENT DISORDER
     Route: 065
  5. ZICONOTIDE [Suspect]
     Active Substance: ZICONOTIDE
     Dosage: 9 MICROGRAM DAILY; INTRATHECAL INFUSION PUMP RATE INCREASED
     Route: 037
     Dates: start: 201812, end: 201903
  6. CYCLOBENZAPRINE. [Concomitant]
     Active Substance: CYCLOBENZAPRINE
     Indication: PRODUCT USED FOR UNKNOWN INDICATION
     Route: 065
  7. TOPIRAMATE. [Concomitant]
     Active Substance: TOPIRAMATE
     Indication: PRODUCT USED FOR UNKNOWN INDICATION
     Dosage: 200 MILLIGRAM DAILY;
     Route: 065
  8. ZICONOTIDE [Suspect]
     Active Substance: ZICONOTIDE
     Indication: DIABETIC NEUROPATHY
     Dosage: INTRATHECAL INFUSION PUMP; INITIAL DOSE NOT STATED
     Route: 037
     Dates: start: 201703
  9. HYDROXYZINE [Concomitant]
     Active Substance: HYDROXYZINE HYDROCHLORIDE
     Indication: PRODUCT USED FOR UNKNOWN INDICATION
     Route: 065
  10. ZICONOTIDE [Suspect]
     Active Substance: ZICONOTIDE
     Dosage: 7 MICROGRAM DAILY; INTRATHECAL INFUSION PUMP RATE INCREASED
     Route: 037
     Dates: start: 201809
  11. ZIPRASIDONE. [Suspect]
     Active Substance: ZIPRASIDONE
     Indication: MOVEMENT DISORDER
     Route: 065

REACTIONS (3)
  - Hallucination [Unknown]
  - Drug ineffective [Unknown]
  - Movement disorder [Recovered/Resolved]

NARRATIVE: CASE EVENT DATE: 201811
